FAERS Safety Report 5667794-9 (Version None)
Quarter: 2008Q1

REPORT INFORMATION
  Report Type: 
  Country: None (occurrence: None)
  Receive Date: 20080315
  Receipt Date: 20080201
  Transmission Date: 20080703
  Serious: No
  Sender: FDA-Public Use
  Company Number: US-ABBOTT-08P-163-0436849-00

PATIENT
  Sex: Female
  Weight: 99.88 kg

DRUGS (7)
  1. HUMIRA [Suspect]
     Indication: RHEUMATOID ARTHRITIS
     Route: 058
     Dates: start: 20071210
  2. HUMIRA [Suspect]
     Indication: PSORIASIS
  3. ZOLPIDEM TARTRATE [Concomitant]
     Indication: SLEEP DISORDER
     Route: 048
  4. PROPACET 100 [Concomitant]
     Indication: PAIN
     Route: 048
  5. ALPRAZOLAM [Concomitant]
     Indication: ANXIETY
     Route: 048
  6. PREGABALIN [Concomitant]
     Indication: FIBROMYALGIA
     Route: 048
  7. CORTISONE [Concomitant]
     Indication: RHEUMATOID ARTHRITIS
     Route: 048

REACTIONS (10)
  - ABDOMINAL PAIN [None]
  - CONJUNCTIVITIS [None]
  - DIARRHOEA [None]
  - INJECTION SITE PAIN [None]
  - INJECTION SITE RASH [None]
  - INJECTION SITE REACTION [None]
  - NASOPHARYNGITIS [None]
  - NAUSEA [None]
  - VISION BLURRED [None]
  - VOMITING [None]
